FAERS Safety Report 5499361-4 (Version None)
Quarter: 2007Q4

REPORT INFORMATION
  Report Type: 
  Country: None (occurrence: None)
  Receive Date: 20071026
  Receipt Date: 20071022
  Transmission Date: 20080405
  Serious: Yes (Hospitalization)
  Sender: FDA-Public Use
  Company Number: US-MERCK-0710USA04354

PATIENT
  Sex: Male

DRUGS (1)
  1. JANUMET [Suspect]
     Indication: DIABETES MELLITUS
     Route: 048
     Dates: start: 20070801, end: 20070901

REACTIONS (3)
  - DIABETES MELLITUS INADEQUATE CONTROL [None]
  - STEVENS-JOHNSON SYNDROME [None]
  - TENDON RUPTURE [None]
